FAERS Safety Report 6594593-6 (Version None)
Quarter: 2010Q1

REPORT INFORMATION
  Report Type: 
  Country: None (occurrence: None)
  Receive Date: 20100222
  Receipt Date: 20100212
  Transmission Date: 20100710
  Serious: Yes (Other)
  Sender: FDA-Public Use
  Company Number: US-SANOFI-AVENTIS-2010SA009354

PATIENT
  Age: 56 Year
  Sex: Male

DRUGS (6)
  1. LANTUS [Suspect]
     Indication: TYPE 2 DIABETES MELLITUS
     Dosage: DOSE:60 UNIT(S)
     Route: 058
     Dates: start: 20080501
  2. LANTUS [Suspect]
     Dosage: SOMETIMES HE TAKES IT ONCE DAILY AND SOMETIMES HE SPLITS THE DOSE TO TWICE DAILY DOSE:98 UNIT(S)
     Route: 058
  3. DIOVANE [Concomitant]
     Route: 065
     Dates: start: 20090101
  4. BENICAR [Concomitant]
     Dates: start: 20090201
  5. LISINOPRIL [Concomitant]
     Dosage: STARTED END OF FEB-2009 OR ERALY MAR-2009
     Dates: start: 20090101
  6. AMLODIPINE [Concomitant]
     Dosage: STARTED IN AUG-2009 OR SEP-2009
     Dates: start: 20090101

REACTIONS (2)
  - BLOOD GLUCOSE INCREASED [None]
  - RENAL IMPAIRMENT [None]
